FAERS Safety Report 6762105-X (Version None)
Quarter: 2010Q2

REPORT INFORMATION
  Report Type: 
  Country: None (occurrence: None)
  Receive Date: 20100609
  Receipt Date: 20100526
  Transmission Date: 20101027
  Serious: Yes (Death)
  Sender: FDA-Public Use
  Company Number: JP-BAYER-200910620BYL

PATIENT
  Age: 18 Year
  Sex: Male

DRUGS (5)
  1. FLUDARA [Suspect]
     Indication: STEM CELL TRANSPLANT
     Dosage: TOTAL DAILY DOSE: 30 MG/M2  UNIT DOSE: 50 MG
     Route: 042
     Dates: start: 20080920, end: 20080923
  2. MELPHALAN HYDROCHLORIDE [Suspect]
     Indication: BONE MARROW TRANSPLANT
     Dosage: TOTAL DAILY DOSE: 90 MG/M2
     Route: 065
     Dates: start: 20080920, end: 20080921
  3. ANTI-HUMAN THYMOCYTE IMMUNOGLOBULIN,RABBIT [Concomitant]
     Indication: BONE MARROW TRANSPLANT
     Dosage: TOTAL DAILY DOSE: 15 MG/M2
     Route: 065
     Dates: start: 20080920, end: 20080923
  4. TACROLIMUS HYDRATE [Concomitant]
     Indication: PROPHYLAXIS AGAINST GRAFT VERSUS HOST DISEASE
     Route: 065
     Dates: start: 20080929
  5. METHOTREXATE [Concomitant]
     Indication: PROPHYLAXIS AGAINST GRAFT VERSUS HOST DISEASE
     Route: 065

REACTIONS (2)
  - GASTROINTESTINAL HAEMORRHAGE [None]
  - HISTIOCYTOSIS HAEMATOPHAGIC [None]
